FAERS Safety Report 19145423 (Version 1)
Quarter: 2021Q2

REPORT INFORMATION
  Report Type: Spontaneous
  Country: US (occurrence: US)
  Receive Date: 20210415
  Receipt Date: 20210415
  Transmission Date: 20210717
  Serious: Yes (Disabling)
  Sender: FDA-Public Use
  Company Number: None

PATIENT
  Age: 84 Year
  Sex: Female
  Weight: 74.39 kg

DRUGS (6)
  1. PACE MAKER [Concomitant]
  2. SYNTHROID [Concomitant]
     Active Substance: LEVOTHYROXINE SODIUM
  3. D3, B?12 [Concomitant]
  4. ALPHA LIPOIC ACID [Concomitant]
     Active Substance: .ALPHA.-LIPOIC ACID
  5. CULTUREL [Concomitant]
  6. ELIQUIS [Suspect]
     Active Substance: APIXABAN
     Dosage: ?          QUANTITY:5 MG MILLIGRAM(S);?
     Route: 048
     Dates: start: 20201027, end: 20210129

REACTIONS (6)
  - Post procedural complication [None]
  - Urinary tract disorder [None]
  - Blood urine [None]
  - Alopecia [None]
  - Weight increased [None]
  - Thrombosis [None]

NARRATIVE: CASE EVENT DATE: 20201108
